FAERS Safety Report 7107387-X (Version None)
Quarter: 2010Q4

REPORT INFORMATION
  Report Type: 
  Country: None (occurrence: None)
  Receive Date: 20101111
  Receipt Date: 20101111
  Transmission Date: 20110411
  Serious: Yes (Other)
  Sender: FDA-Public Use
  Company Number: None

PATIENT
  Age: 53 Year
  Sex: Female
  Weight: 66.6788 kg

DRUGS (3)
  1. HERCEPTIN [Suspect]
     Indication: BREAST CANCER
     Dosage: 404 MG Q 3 WKS X 6 SO FAR IV DRIP
     Route: 041
     Dates: start: 20100709, end: 20101022
  2. BEVACIZUMAB [Suspect]
     Indication: BREAST CANCER
     Dosage: 1010 MG Q 3WKS X 6 IV DRIP
     Route: 041
     Dates: start: 20100709, end: 20101022
  3. TAXOTERE [Suspect]
     Indication: BREAST CANCER
     Dosage: 130 MG DONE IV DRIP
     Route: 041
     Dates: start: 20100709, end: 20101022

REACTIONS (2)
  - FALL [None]
  - HUMERUS FRACTURE [None]
